FAERS Safety Report 23137245 (Version 4)
Quarter: 2025Q2

REPORT INFORMATION
  Report Type: Spontaneous
  Country: IT (occurrence: IT)
  Receive Date: 20231102
  Receipt Date: 20250430
  Transmission Date: 20250716
  Serious: Yes (Other)
  Sender: AUROBINDO
  Company Number: IT-AUROBINDO-AUR-APL-2023-066023

PATIENT
  Age: 71 Year
  Sex: Female

DRUGS (14)
  1. MIRTAZAPINE [Suspect]
     Active Substance: MIRTAZAPINE
     Indication: Bipolar II disorder
     Route: 065
  2. PAROXETINE [Suspect]
     Active Substance: PAROXETINE
     Indication: Bipolar II disorder
     Route: 065
  3. QUETIAPINE [Suspect]
     Active Substance: QUETIAPINE
     Indication: Bipolar II disorder
     Dosage: 100 MILLIGRAM, ONCE A DAY
     Route: 065
  4. SERTRALINE [Suspect]
     Active Substance: SERTRALINE HYDROCHLORIDE
     Indication: Bipolar II disorder
     Route: 065
  5. VALPROATE SODIUM [Suspect]
     Active Substance: VALPROATE SODIUM
     Indication: Bipolar II disorder
     Route: 065
  6. VALPROATE SODIUM [Suspect]
     Active Substance: VALPROATE SODIUM
     Indication: Affective disorder
  7. VENLAFAXINE [Suspect]
     Active Substance: VENLAFAXINE HYDROCHLORIDE
     Indication: Bipolar II disorder
     Route: 065
  8. AMITRIPTYLINE [Suspect]
     Active Substance: AMITRIPTYLINE
     Indication: Bipolar II disorder
     Route: 065
  9. BREXPIPRAZOLE [Suspect]
     Active Substance: BREXPIPRAZOLE
     Indication: Product used for unknown indication
     Dosage: 1 MILLIGRAM, ONCE A DAY
     Route: 065
  10. BREXPIPRAZOLE [Suspect]
     Active Substance: BREXPIPRAZOLE
     Route: 065
  11. IMIPRAMINE [Suspect]
     Active Substance: IMIPRAMINE
     Indication: Bipolar II disorder
     Route: 065
  12. LITHIUM [Suspect]
     Active Substance: LITHIUM
     Indication: Bipolar II disorder
     Route: 065
  13. LURASIDONE [Suspect]
     Active Substance: LURASIDONE
     Indication: Bipolar II disorder
     Route: 065
  14. PERPHENAZINE [Suspect]
     Active Substance: PERPHENAZINE
     Indication: Bipolar II disorder
     Route: 065

REACTIONS (7)
  - Akathisia [Recovering/Resolving]
  - Sedation [Recovering/Resolving]
  - Extrapyramidal disorder [Recovering/Resolving]
  - Agitation [Recovering/Resolving]
  - Drug ineffective [Unknown]
  - Off label use [Unknown]
  - Somnolence [Unknown]
